FAERS Safety Report 8862448 (Version 2)
Quarter: 2012Q4

REPORT INFORMATION
  Report Type: 
  Country: IT (occurrence: IT)
  Receive Date: 20121026
  Receipt Date: 20121126
  Transmission Date: 20130627
  Serious: Yes (Other)
  Sender: FDA-Public Use
  Company Number: IT-JNJFOC-20121010898

PATIENT

DRUGS (38)
  1. DOXORUBICIN [Suspect]
     Indication: FOETAL EXPOSURE DURING PREGNANCY
     Dosage: REN-1 protocol
     Route: 064
  2. DOXORUBICIN [Suspect]
     Indication: FOETAL EXPOSURE DURING PREGNANCY
     Dosage: ISG/SSG III protocol (poor responders)
     Route: 064
  3. DOXORUBICIN [Suspect]
     Indication: FOETAL EXPOSURE DURING PREGNANCY
     Dosage: ISG/SSG III protocol (good responders)
     Route: 064
  4. DOXORUBICIN [Suspect]
     Indication: FOETAL EXPOSURE DURING PREGNANCY
     Dosage: REN-3 protocol
     Route: 064
  5. DOXORUBICIN [Suspect]
     Indication: FOETAL EXPOSURE DURING PREGNANCY
     Dosage: REN-2 protocol
     Route: 064
  6. DOXORUBICIN HYDROCHLORIDE [Suspect]
     Indication: FOETAL EXPOSURE DURING PREGNANCY
     Dosage: REN-3 protocol
     Route: 064
  7. DOXORUBICIN HYDROCHLORIDE [Suspect]
     Indication: FOETAL EXPOSURE DURING PREGNANCY
     Dosage: REN-1 protocol
     Route: 064
  8. DOXORUBICIN HYDROCHLORIDE [Suspect]
     Indication: FOETAL EXPOSURE DURING PREGNANCY
     Dosage: REN-2 protocol
     Route: 064
  9. DOXORUBICIN HYDROCHLORIDE [Suspect]
     Indication: FOETAL EXPOSURE DURING PREGNANCY
     Dosage: ISG/SSG III protocol (good responders)
     Route: 064
  10. DOXORUBICIN HYDROCHLORIDE [Suspect]
     Indication: FOETAL EXPOSURE DURING PREGNANCY
     Dosage: ISG/SSG III protocol (poor responders)
     Route: 064
  11. VINCRISTINE [Suspect]
     Indication: FOETAL EXPOSURE DURING PREGNANCY
     Dosage: ISG/SSG III protocol (poor responder)
     Route: 064
  12. VINCRISTINE [Suspect]
     Indication: FOETAL EXPOSURE DURING PREGNANCY
     Dosage: ISG/SSG III protocol (good responder)
     Route: 064
  13. VINCRISTINE [Suspect]
     Indication: FOETAL EXPOSURE DURING PREGNANCY
     Dosage: REN-3 protocol
     Route: 064
  14. VINCRISTINE [Suspect]
     Indication: FOETAL EXPOSURE DURING PREGNANCY
     Dosage: REN-2 protocol
     Route: 064
  15. VINCRISTINE [Suspect]
     Indication: FOETAL EXPOSURE DURING PREGNANCY
     Dosage: REN-1 protocol
     Route: 064
  16. DACTINOMYCIN [Suspect]
     Indication: FOETAL EXPOSURE DURING PREGNANCY
     Dosage: ISG/SSG III protocol (poor responders)
     Route: 064
  17. DACTINOMYCIN [Suspect]
     Indication: FOETAL EXPOSURE DURING PREGNANCY
     Dosage: ISG/SSG III protocol (good responders)
     Route: 064
  18. DACTINOMYCIN [Suspect]
     Indication: FOETAL EXPOSURE DURING PREGNANCY
     Dosage: REN-3 protocol
     Route: 064
  19. DACTINOMYCIN [Suspect]
     Indication: FOETAL EXPOSURE DURING PREGNANCY
     Dosage: REN-2 protocol
     Route: 064
  20. DACTINOMYCIN [Suspect]
     Indication: FOETAL EXPOSURE DURING PREGNANCY
     Dosage: REN-1 protocol
     Route: 064
  21. CYCLOPHOSPHAMIDE [Suspect]
     Indication: FOETAL EXPOSURE DURING PREGNANCY
     Dosage: ISG/SSG III protocol (poor responders)
     Route: 064
  22. CYCLOPHOSPHAMIDE [Suspect]
     Indication: FOETAL EXPOSURE DURING PREGNANCY
     Dosage: ISG/SSG III protocol (good responders)
     Route: 064
  23. CYCLOPHOSPHAMIDE [Suspect]
     Indication: FOETAL EXPOSURE DURING PREGNANCY
     Dosage: REN-2 protocol
     Route: 064
  24. CYCLOPHOSPHAMIDE [Suspect]
     Indication: FOETAL EXPOSURE DURING PREGNANCY
     Dosage: REN-1 protocol
     Route: 064
  25. IFOSFAMIDE [Suspect]
     Indication: FOETAL EXPOSURE DURING PREGNANCY
     Dosage: ISG/SSG III protocol (poor responders)
     Route: 064
  26. IFOSFAMIDE [Suspect]
     Indication: FOETAL EXPOSURE DURING PREGNANCY
     Dosage: ISG/SSG III protocol (good responders)
     Route: 064
  27. IFOSFAMIDE [Suspect]
     Indication: FOETAL EXPOSURE DURING PREGNANCY
     Dosage: REN 2 protocol
     Route: 064
  28. IFOSFAMIDE [Suspect]
     Indication: FOETAL EXPOSURE DURING PREGNANCY
     Dosage: REN 3 protocol
     Route: 064
  29. ETOPOSIDE [Suspect]
     Indication: FOETAL EXPOSURE DURING PREGNANCY
     Dosage: ISG/SSG III  protocol (poor responders)
     Route: 064
  30. ETOPOSIDE [Suspect]
     Indication: FOETAL EXPOSURE DURING PREGNANCY
     Dosage: ISG/SSG III  protocol (good responders)
     Route: 064
  31. ETOPOSIDE [Suspect]
     Indication: FOETAL EXPOSURE DURING PREGNANCY
     Dosage: REN 2 protocol
     Route: 064
  32. ETOPOSIDE [Suspect]
     Indication: FOETAL EXPOSURE DURING PREGNANCY
     Dosage: REN 3 protocol
     Route: 064
  33. BUSULFAN [Suspect]
     Indication: FOETAL EXPOSURE DURING PREGNANCY
     Dosage: on days 1-4 ISG/SSG III  protocol (poor responders)
     Route: 064
  34. MELPHALAN [Suspect]
     Indication: FOETAL EXPOSURE DURING PREGNANCY
     Dosage: on day 5, ISG/SSG III protocol (poor responders)
     Route: 064
  35. RADIOTHERAPY [Suspect]
     Indication: FOETAL EXPOSURE DURING PREGNANCY
     Dosage: ISG/SSG III protocol, 45 to 54 Gy
     Route: 064
  36. RADIOTHERAPY [Suspect]
     Indication: FOETAL EXPOSURE DURING PREGNANCY
     Dosage: REN-3 protocol 45 to 60 Gy
     Route: 064
  37. RADIOTHERAPY [Suspect]
     Indication: FOETAL EXPOSURE DURING PREGNANCY
     Dosage: REN-2 protocol 44 to 60 Gy
     Route: 064
  38. RADIOTHERAPY [Suspect]
     Indication: FOETAL EXPOSURE DURING PREGNANCY
     Dosage: REN-1 protocol 45 to 55 Gy
     Route: 064

REACTIONS (1)
  - Premature baby [Not Recovered/Not Resolved]
